FAERS Safety Report 6165244-X (Version None)
Quarter: 2009Q2

REPORT INFORMATION
  Report Type: 
  Country: None (occurrence: None)
  Receive Date: 20090421
  Receipt Date: 20090421
  Transmission Date: 20091009
  Serious: No
  Sender: FDA-Public Use
  Company Number: None

PATIENT
  Age: 30 Year
  Sex: Male
  Weight: 95.2554 kg

DRUGS (1)
  1. PROPECIA [Suspect]
     Indication: ALOPECIA
     Dosage: 1MG ONCE DAILY PO
     Route: 048
     Dates: start: 20090301, end: 20090420

REACTIONS (2)
  - ERECTILE DYSFUNCTION [None]
  - TESTICULAR PAIN [None]
